FAERS Safety Report 8254498-1 (Version None)
Quarter: 2012Q2

REPORT INFORMATION
  Report Type: 
  Country: None (occurrence: None)
  Receive Date: 20120403
  Receipt Date: 20120323
  Transmission Date: 20120825
  Serious: No
  Sender: FDA-Public Use
  Company Number: US-BIOGENIDEC-2012BI010534

PATIENT
  Sex: Male

DRUGS (2)
  1. TYSABRI [Suspect]
     Indication: MULTIPLE SCLEROSIS
     Route: 042
     Dates: start: 20070509, end: 20111101
  2. TYSABRI [Suspect]
     Route: 042
     Dates: start: 20120301

REACTIONS (5)
  - PAIN [None]
  - MUSCULOSKELETAL STIFFNESS [None]
  - ASTHENIA [None]
  - MOBILITY DECREASED [None]
  - FATIGUE [None]
